FAERS Safety Report 8060409-4 (Version None)
Quarter: 2012Q1

REPORT INFORMATION
  Report Type: 
  Country: None (occurrence: None)
  Receive Date: 20120120
  Receipt Date: 20111014
  Transmission Date: 20120608
  Serious: Yes (Hospitalization)
  Sender: FDA-Public Use
  Company Number: CA-GLAXOSMITHKLINE-A0949050A

PATIENT
  Sex: Female
  Weight: 47.7 kg

DRUGS (4)
  1. FLOLAN [Suspect]
     Indication: PULMONARY ARTERIAL HYPERTENSION
     Route: 042
  2. FLOLAN [Suspect]
     Indication: PULMONARY ARTERIAL HYPERTENSION
     Dosage: 1.5MGML PER DAY
     Route: 042
     Dates: start: 20110815
  3. VIAGRA [Concomitant]
  4. VOLIBRIS [Concomitant]

REACTIONS (2)
  - LUNG TRANSPLANT [None]
  - HOSPITALISATION [None]
